FAERS Safety Report 7504106-X (Version None)
Quarter: 2011Q2

REPORT INFORMATION
  Report Type: 
  Country: None (occurrence: None)
  Receive Date: 20110401
  Receipt Date: 20110302
  Transmission Date: 20111010
  Serious: Yes (Other)
  Sender: FDA-Public Use
  Company Number: US-004857

PATIENT
  Sex: Male
  Weight: 81.6475 kg

DRUGS (2)
  1. FIRMAGON [Suspect]
     Indication: PROSTATE CANCER
     Dosage: 240 MG 1X SUBCUTANEOUS, 80 MG 1X/MONTH SUBCUTANEOUS
     Route: 058
     Dates: start: 20110117
  2. FIRMAGON [Suspect]
     Indication: PROSTATE CANCER
     Dosage: 240 MG 1X SUBCUTANEOUS, 80 MG 1X/MONTH SUBCUTANEOUS
     Route: 058
     Dates: start: 20101217, end: 20101217

REACTIONS (3)
  - BLOOD PRESSURE INCREASED [None]
  - DISCOMFORT [None]
  - INJECTION SITE PAIN [None]
